FAERS Safety Report 13672840 (Version 1)
Quarter: 2017Q2

REPORT INFORMATION
  Report Type: Spontaneous
  Country: JP (occurrence: JP)
  Receive Date: 20170621
  Receipt Date: 20170621
  Transmission Date: 20170830
  Serious: Yes (Other)
  Sender: FDA-Public Use
  Company Number: JP-PFIZER INC-2017265860

PATIENT
  Age: 70 Year
  Sex: Female

DRUGS (1)
  1. DIACORT 0.05% [Suspect]
     Active Substance: DIFLORASONE DIACETATE
     Indication: SARCOIDOSIS
     Route: 061

REACTIONS (2)
  - Wound infection [Unknown]
  - Injury [Unknown]
